FAERS Safety Report 4373008-2 (Version None)
Quarter: 2004Q2

REPORT INFORMATION
  Report Type: 
  Country: None (occurrence: None)
  Receive Date: 20040608
  Receipt Date: 20011101
  Transmission Date: 20050107
  Serious: Yes (Congenital Anomaly)
  Sender: FDA-Public Use
  Company Number: US-ROCHE-301018

PATIENT
  Sex: Female
  Weight: 3.2 kg

DRUGS (3)
  1. ACCUTANE [Suspect]
     Indication: ACNE
     Dates: start: 20010615, end: 20010910
  2. ACCUTANE [Suspect]
     Dates: start: 20011012, end: 20011012
  3. ORAL CONTRACEPTIVE NOS [Concomitant]
     Indication: CONTRACEPTION
     Dates: end: 20010914

REACTIONS (5)
  - CONGENITAL ATRIAL SEPTAL DEFECT [None]
  - DRUG EXPOSURE DURING PREGNANCY [None]
  - GASTROENTERITIS [None]
  - RASH [None]
  - VIRAL RASH [None]
